FAERS Safety Report 11270841 (Version 3)
Quarter: 2019Q2

REPORT INFORMATION
  Report Type: Report from Study
  Country: DE (occurrence: DE)
  Receive Date: 20150714
  Receipt Date: 20190401
  Transmission Date: 20190711
  Serious: Yes (Other)
  Sender: FDA-Public Use
  Company Number: DE-GILEAD-2015-0153225

PATIENT
  Age: 62 Year
  Sex: Male
  Weight: 70 kg

DRUGS (4)
  1. PREDNISOLON                        /00016201/ [Concomitant]
     Active Substance: PREDNISOLONE
     Dosage: UNK
  2. LEDIPASVIR/SOFOSBUVIR [Suspect]
     Active Substance: LEDIPASVIR\SOFOSBUVIR
     Indication: CHRONIC HEPATITIS C
     Dosage: 1 DF, QD
     Route: 048
     Dates: start: 20150410, end: 20150703
  3. RAMIPRIL. [Concomitant]
     Active Substance: RAMIPRIL
     Indication: CARDIOVASCULAR DISORDER
     Dosage: 5 MG, UNK
     Route: 065
  4. ASPIRIN. [Concomitant]
     Active Substance: ASPIRIN
     Dosage: 100 MG, UNK
     Route: 065

REACTIONS (3)
  - Haemangioma of liver [Unknown]
  - Headache [Unknown]
  - Oedema peripheral [Recovering/Resolving]

NARRATIVE: CASE EVENT DATE: 20150601
